FAERS Safety Report 6720055-9 (Version None)
Quarter: 2010Q2

REPORT INFORMATION
  Report Type: 
  Country: None (occurrence: None)
  Receive Date: 20100511
  Receipt Date: 20100503
  Transmission Date: 20101027
  Serious: Yes (Death, Other)
  Sender: FDA-Public Use
  Company Number: FR-GENZYME-CLOF-1000861

PATIENT

DRUGS (8)
  1. EVOLTRA [Suspect]
     Indication: ACUTE LYMPHOCYTIC LEUKAEMIA
     Dosage: 30 MG/M2, QDX5
     Route: 042
     Dates: start: 20081028, end: 20081101
  2. DEXAMETHASONE [Suspect]
     Indication: ACUTE LYMPHOCYTIC LEUKAEMIA
     Dosage: 10 MG/M2, QDX5
     Route: 048
     Dates: start: 20081028, end: 20081101
  3. MITOXANTRONE [Suspect]
     Indication: ACUTE LYMPHOCYTIC LEUKAEMIA
     Dosage: 8 MG/M2, QD
     Route: 042
     Dates: start: 20081030, end: 20081031
  4. ETOPOSIDE [Suspect]
     Indication: ACUTE LYMPHOCYTIC LEUKAEMIA
     Dosage: 150 MG/M2, QD
     Route: 042
     Dates: start: 20081030, end: 20081101
  5. PEG-ASPARAGINASE [Suspect]
     Indication: ACUTE LYMPHOCYTIC LEUKAEMIA
     Dosage: 2500 U/M2, ONCE
     Route: 042
     Dates: start: 20081103, end: 20081103
  6. METHOTREXATE [Concomitant]
     Indication: DRUG USE FOR UNKNOWN INDICATION
     Dosage: 15 MG, ONCE
     Route: 008
     Dates: start: 20081101, end: 20081101
  7. DEPO-MEDROL [Concomitant]
     Indication: DRUG USE FOR UNKNOWN INDICATION
     Dosage: 40 MG, ONCE
     Route: 008
     Dates: start: 20081101, end: 20081101
  8. CYTARABINE [Concomitant]
     Indication: DRUG USE FOR UNKNOWN INDICATION
     Dosage: 40 MG, ONCE
     Route: 008
     Dates: start: 20081101, end: 20081101

REACTIONS (5)
  - CANDIDA SEPSIS [None]
  - COMA [None]
  - CONFUSIONAL STATE [None]
  - EPILEPSY [None]
  - TOXIC ENCEPHALOPATHY [None]
